FAERS Safety Report 5420835-6 (Version None)
Quarter: 2007Q3

REPORT INFORMATION
  Report Type: 
  Country: None (occurrence: None)
  Receive Date: 20070816
  Receipt Date: 20070807
  Transmission Date: 20080115
  Serious: Yes (Hospitalization)
  Sender: FDA-Public Use
  Company Number: 2007-03706

PATIENT
  Age: 52 Year
  Sex: Male

DRUGS (3)
  1. FORTAMET [Suspect]
     Indication: DIABETES MELLITUS
     Dosage: 850 MG, DAILY
  2. VERAPAMIL [Concomitant]
  3. ACETYLSALICYLIC ACID SRT [Concomitant]

REACTIONS (2)
  - HEPATOTOXICITY [None]
  - LACTIC ACIDOSIS [None]
